FAERS Safety Report 4434642-4 (Version None)
Quarter: 2004Q3

REPORT INFORMATION
  Report Type: 
  Country: None (occurrence: None)
  Receive Date: 20040826
  Receipt Date: 20040820
  Transmission Date: 20050211
  Serious: Yes (Other)
  Sender: FDA-Public Use
  Company Number: 002469

PATIENT
  Age: 54 Year
  Sex: Female

DRUGS (7)
  1. MEDROXYPROGESTERONE ACETATE [Suspect]
     Dates: start: 19930809, end: 19970501
  2. PREMARIN [Suspect]
     Dates: start: 19930809, end: 19930820
  3. PROVERA [Suspect]
     Dates: start: 19930809, end: 19970501
  4. MEDROXYPROGESTERONE ACETATE [Suspect]
     Dates: start: 19990310, end: 19990709
  5. PREMPHASE (PREMARIN;CYCRIN 14/14) [Suspect]
     Dates: start: 19970122, end: 19990310
  6. ESTRATEST [Suspect]
     Dates: start: 19970616, end: 19970501
  7. ESTRADERM [Suspect]
     Dates: start: 19930820, end: 19970304

REACTIONS (1)
  - BREAST CANCER [None]
